FAERS Safety Report 8110262 (Version 3)
Quarter: 2024Q2

REPORT INFORMATION
  Report Type: Report from Study
  Country: US (occurrence: US)
  Receive Date: 20110829
  Receipt Date: 20240627
  Transmission Date: 20240716
  Serious: Yes (Hospitalization)
  Sender: FDA-Public Use
  Company Number: US-JNJFOC-20110809171

PATIENT
  Age: 65 Year
  Sex: Female
  Weight: 71.732 kg

DRUGS (11)
  1. REMICADE [Suspect]
     Active Substance: INFLIXIMAB
     Indication: Psoriasis
     Dosage: END DATE-20-DEC-2017
     Route: 041
     Dates: start: 20090217
  2. COUMADIN [Suspect]
     Active Substance: WARFARIN SODIUM
     Indication: Atrial fibrillation
  3. TACLONEX [Concomitant]
     Active Substance: BETAMETHASONE DIPROPIONATE\CALCIPOTRIENE\CALCIPOTRIENE HYDRATE
  4. ZOLOFT [Concomitant]
     Active Substance: SERTRALINE HYDROCHLORIDE
  5. NEURONTIN [Concomitant]
     Active Substance: GABAPENTIN
  6. DIGOXIN [Concomitant]
     Active Substance: DIGOXIN
  7. METHOTREXATE [Concomitant]
     Active Substance: METHOTREXATE
  8. LOPRESSOR [Concomitant]
     Active Substance: METOPROLOL TARTRATE
  9. LASIX [Concomitant]
     Active Substance: FUROSEMIDE
  10. POTASSIUM CHLORIDE [Concomitant]
     Active Substance: POTASSIUM CHLORIDE
  11. ECOTRIN [Concomitant]
     Active Substance: ASPIRIN

REACTIONS (5)
  - Peptic ulcer haemorrhage [Recovered/Resolved]
  - Pneumonia [Recovered/Resolved]
  - Coagulopathy [Recovered/Resolved]
  - Gastrointestinal infection [Unknown]
  - Urinary tract infection [Unknown]

NARRATIVE: CASE EVENT DATE: 20110408
